FAERS Safety Report 19605919 (Version 6)
Quarter: 2021Q4

REPORT INFORMATION
  Report Type: Spontaneous
  Country: US (occurrence: US)
  Receive Date: 20210723
  Receipt Date: 20211228
  Transmission Date: 20220303
  Serious: No
  Sender: FDA-Public Use
  Company Number: US-BIOMARINAP-US-2021-137653

PATIENT
  Age: 54 Year
  Sex: Male

DRUGS (2)
  1. ALDURAZYME [Suspect]
     Active Substance: LARONIDASE
     Indication: Mucopolysaccharidosis I
     Dosage: 34.8 MILLIGRAM, QW
     Route: 042
     Dates: start: 20210622
  2. ALDURAZYME [Suspect]
     Active Substance: LARONIDASE
     Dosage: 34.8 MILLIGRAM, QW
     Route: 042
     Dates: start: 2021

REACTIONS (9)
  - Mucopolysaccharidosis I [Not Recovered/Not Resolved]
  - Condition aggravated [Not Recovered/Not Resolved]
  - Drug ineffective [Not Recovered/Not Resolved]
  - Respiration abnormal [Unknown]
  - Bronchial hyperreactivity [Not Recovered/Not Resolved]
  - Memory impairment [Unknown]
  - Visual field defect [Unknown]
  - Illness [Recovered/Resolved]
  - Aortic anastomosis [Not Recovered/Not Resolved]

NARRATIVE: CASE EVENT DATE: 20210101
